FAERS Safety Report 16862776 (Version 1)
Quarter: 2019Q3

REPORT INFORMATION
  Report Type: Spontaneous
  Country: CH (occurrence: CH)
  Receive Date: 20190927
  Receipt Date: 20190927
  Transmission Date: 20191005
  Serious: Yes (Other)
  Sender: FDA-Public Use
  Company Number: CH-009507513-1909CHE007605

PATIENT
  Sex: Male
  Weight: 85 kg

DRUGS (6)
  1. TEMOZOLOMIDE. [Suspect]
     Active Substance: TEMOZOLOMIDE
     Dosage: 2ND CYCLE, 420 MILLIGRAM
     Dates: start: 20190306, end: 20190310
  2. TEMOZOLOMIDE. [Suspect]
     Active Substance: TEMOZOLOMIDE
     Dosage: 420 MILLIGRAM, 6TH CYCLE
     Dates: start: 20190717, end: 20190721
  3. TEMOZOLOMIDE. [Suspect]
     Active Substance: TEMOZOLOMIDE
     Dosage: 3RD CYCLE, 420 MILLIGRAM
     Dates: start: 20190403, end: 20190407
  4. TEMOZOLOMIDE. [Suspect]
     Active Substance: TEMOZOLOMIDE
     Dosage: 1ST CYCLE, 320 MILLIGRAM
     Dates: start: 20190206, end: 20190210
  5. TEMOZOLOMIDE. [Suspect]
     Active Substance: TEMOZOLOMIDE
     Dosage: 4TH CYCLE
     Dates: start: 20190522, end: 20190526
  6. TEMOZOLOMIDE. [Suspect]
     Active Substance: TEMOZOLOMIDE
     Dosage: 420 MILLIGRAM, 5TH CYCLE
     Dates: start: 20190619, end: 20190623

REACTIONS (5)
  - Partial seizures [Unknown]
  - Hypoaesthesia [Unknown]
  - Weight decreased [Unknown]
  - Neoplasm progression [Unknown]
  - Fatigue [Unknown]

NARRATIVE: CASE EVENT DATE: 2019
